FAERS Safety Report 17625496 (Version 1)
Quarter: 2020Q2

REPORT INFORMATION
  Report Type: Spontaneous
  Country: IT (occurrence: IT)
  Receive Date: 20200404
  Receipt Date: 20200404
  Transmission Date: 20200713
  Serious: Yes (Other)
  Sender: FDA-Public Use
  Company Number: IT-SUN PHARMACEUTICAL INDUSTRIES LTD-2020RR-242745

PATIENT
  Age: 84 Year
  Sex: Female

DRUGS (1)
  1. ALENDRONIC ACID [Suspect]
     Active Substance: ALENDRONIC ACID
     Indication: SPINAL OSTEOARTHRITIS
     Dosage: 70 MILLIGRAM, 1/WEEK
     Route: 048
     Dates: start: 20050101, end: 20190301

REACTIONS (1)
  - Osteonecrosis of jaw [Recovering/Resolving]

NARRATIVE: CASE EVENT DATE: 20190501
